FAERS Safety Report 11675251 (Version 1)
Quarter: 2015Q4

REPORT INFORMATION
  Report Type: Spontaneous
  Country: IR (occurrence: IR)
  Receive Date: 20151028
  Receipt Date: 20151028
  Transmission Date: 20160304
  Serious: Yes (Other)
  Sender: FDA-Public Use
  Company Number: IR-EAGLE PHARMACEUTICALS, INC.-ELL201510-000203

PATIENT
  Age: 3 Year
  Sex: Male

DRUGS (1)
  1. DICLOFENAC SODIUM AND MISOPROSTOL [Suspect]
     Active Substance: DICLOFENAC SODIUM\MISOPROSTOL

REACTIONS (2)
  - Injection site injury [Unknown]
  - Sciatic nerve palsy [Unknown]
